FAERS Safety Report 8381971-8 (Version None)
Quarter: 2012Q2

REPORT INFORMATION
  Report Type: 
  Country: None (occurrence: None)
  Receive Date: 20120522
  Receipt Date: 20120522
  Transmission Date: 20120825
  Serious: Yes (Congenital Anomaly)
  Sender: FDA-Public Use
  Company Number: None

PATIENT
  Age: 25 Year
  Sex: Female
  Weight: 72.5755 kg

DRUGS (2)
  1. ZOLOFT [Suspect]
     Indication: DEPRESSION
     Dosage: 100MG ONCE A DAY PO
     Route: 048
     Dates: start: 20120201, end: 20120521
  2. CELEXA [Suspect]
     Indication: DEPRESSION
     Dosage: 80MG ONCE A DAY PO
     Route: 048
     Dates: start: 20010401, end: 20120229

REACTIONS (2)
  - PREGNANCY [None]
  - MATERNAL EXPOSURE DURING PREGNANCY [None]
